FAERS Safety Report 21962783 (Version 3)
Quarter: 2023Q1

REPORT INFORMATION
  Report Type: Spontaneous
  Country: US (occurrence: US)
  Receive Date: 20230207
  Receipt Date: 20230320
  Transmission Date: 20230418
  Serious: Yes (Other)
  Sender: FDA-Public Use
  Company Number: US-PFIZER INC-PV202300022273

PATIENT
  Age: 65 Year
  Sex: Female

DRUGS (1)
  1. PREMARIN [Suspect]
     Active Substance: ESTROGENS, CONJUGATED
     Dosage: 1.25 MG, DAILY

REACTIONS (9)
  - Cerebrovascular accident [Unknown]
  - Memory impairment [Unknown]
  - Amnesia [Unknown]
  - Stress [Unknown]
  - Malaise [Unknown]
  - Peripheral swelling [Unknown]
  - Arthritis [Unknown]
  - Pain [Unknown]
  - Depressed mood [Unknown]
